FAERS Safety Report 8212572-X (Version None)
Quarter: 2012Q1

REPORT INFORMATION
  Report Type: 
  Country: None (occurrence: None)
  Receive Date: 20120315
  Receipt Date: 20120229
  Transmission Date: 20120608
  Serious: Yes (Hospitalization, Other)
  Sender: FDA-Public Use
  Company Number: CH-WATSON-2012-04359

PATIENT
  Age: 25 Year
  Sex: Female

DRUGS (1)
  1. ZONISAMIDE [Suspect]
     Indication: SUICIDAL IDEATION
     Dosage: 12.6 G SINGLE
     Route: 048

REACTIONS (11)
  - ELECTROCARDIOGRAM QT PROLONGED [None]
  - VOMITING [None]
  - POLYURIA [None]
  - INTENTIONAL OVERDOSE [None]
  - SOMNOLENCE [None]
  - ELECTROCARDIOGRAM QRS COMPLEX PROLONGED [None]
  - HYPOTENSION [None]
  - DEPRESSED LEVEL OF CONSCIOUSNESS [None]
  - LACTIC ACIDOSIS [None]
  - MYOCLONUS [None]
  - DIPLOPIA [None]
